FAERS Safety Report 7151601-1 (Version None)
Quarter: 2010Q4

REPORT INFORMATION
  Report Type: 
  Country: None (occurrence: None)
  Receive Date: 20101210
  Receipt Date: 20101203
  Transmission Date: 20110411
  Serious: Yes (Other)
  Sender: FDA-Public Use
  Company Number: CHPA2010IT18508

PATIENT
  Sex: Male

DRUGS (9)
  1. GLYSENNID [Suspect]
     Indication: CONSTIPATION
     Dosage: 24 MG, QD
     Route: 048
     Dates: start: 20101008
  2. COUMADIN [Suspect]
     Indication: ATRIAL FIBRILLATION
     Dosage: 13.75 MG, QW
     Route: 048
     Dates: start: 20090116, end: 20101011
  3. LASIX [Concomitant]
     Dosage: 50 MG, UNK
     Route: 048
  4. NEO-LOTAN [Concomitant]
     Dosage: 1000 MG, UNK
  5. CORDARONE [Concomitant]
     Dosage: 200 MG, UNK
  6. SIVASTIN [Concomitant]
     Dosage: 20 MG, UNK
  7. CASODEX [Concomitant]
     Dosage: 150 MG, UNK
  8. ALENDRONATO SODICO [Concomitant]
     Dosage: 70 MG, UNK
  9. GLURENOR [Concomitant]
     Dosage: 30 MG, UNK

REACTIONS (1)
  - INTERNATIONAL NORMALISED RATIO DECREASED [None]
